FAERS Safety Report 8255164-9 (Version None)
Quarter: 2012Q2

REPORT INFORMATION
  Report Type: 
  Country: None (occurrence: None)
  Receive Date: 20120403
  Receipt Date: 20120328
  Transmission Date: 20120825
  Serious: Yes (Death)
  Sender: FDA-Public Use
  Company Number: US-CELGENEUS-163-21880-12021446

PATIENT
  Sex: Female

DRUGS (5)
  1. REVLIMID [Suspect]
     Indication: MULTIPLE MYELOMA
     Dosage: 25 MILLIGRAM
     Route: 048
     Dates: start: 20120131, end: 20120201
  2. PROMETHAZINE HCL [Concomitant]
     Route: 065
  3. LISINOPRIL [Concomitant]
     Route: 065
  4. DEXAMETHASONE [Concomitant]
     Route: 065
  5. HYDROCODONE BITARTRATE AND ACETAMINOPHEN [Concomitant]
     Route: 065

REACTIONS (1)
  - DEATH [None]
